FAERS Safety Report 5163131-7 (Version None)
Quarter: 2006Q4

REPORT INFORMATION
  Report Type: 
  Country: None (occurrence: None)
  Receive Date: 20061204
  Receipt Date: 20061122
  Transmission Date: 20070319
  Serious: Yes (Hospitalization)
  Sender: FDA-Public Use
  Company Number: US-JNJFOC-20061200006

PATIENT
  Age: 60 Year
  Sex: Male

DRUGS (17)
  1. PREZISTA [Suspect]
     Indication: HIV INFECTION
     Route: 048
  2. COLCHICINE [Suspect]
     Indication: BLOOD URIC ACID
     Route: 065
  3. RITONAVIR [Concomitant]
     Indication: HIV INFECTION
     Route: 048
  4. FLUVASTATIN [Concomitant]
     Indication: LIPIDS
     Route: 065
  5. TRUVADA [Concomitant]
     Indication: HIV INFECTION
     Route: 065
  6. OMEPRAZOLE [Concomitant]
     Indication: DYSPEPSIA
     Route: 065
  7. TRIMETHOPRIM/SULFISOXAZOLE [Concomitant]
     Indication: INFECTION PROPHYLAXIS
     Route: 065
  8. METOPROLOL SUCCINATE [Concomitant]
     Route: 065
  9. SYNTHROID [Concomitant]
     Route: 065
  10. NEURONTIN [Concomitant]
     Route: 065
  11. PROZAC [Concomitant]
     Route: 065
  12. BUPROPION HCL [Concomitant]
     Route: 065
  13. ASPIRIN [Concomitant]
     Route: 065
  14. ACYCLOVIR [Concomitant]
     Route: 065
  15. OXYCODONE HCL [Concomitant]
     Route: 065
  16. WARFARIN SODIUM [Concomitant]
     Route: 065
  17. FLOMAX [Concomitant]
     Route: 065

REACTIONS (3)
  - BILE DUCT OBSTRUCTION [None]
  - LIVER FUNCTION TEST ABNORMAL [None]
  - MYOSITIS [None]
